FAERS Safety Report 4849048-3 (Version None)
Quarter: 2005Q4

REPORT INFORMATION
  Report Type: 
  Country: None (occurrence: None)
  Receive Date: 20051209
  Receipt Date: 20051207
  Transmission Date: 20060501
  Serious: Yes (Death)
  Sender: FDA-Public Use
  Company Number: DE-BOEHRINGER INGELHEIM PHARMACEUTICALS, INC.-2005-DE-05368DE

PATIENT
  Sex: Male
  Weight: 112 kg

DRUGS (4)
  1. MICARDIS [Suspect]
     Indication: ESSENTIAL HYPERTENSION
     Dates: start: 20050302
  2. ACE INHIBITOR [Concomitant]
  3. STATINE [Concomitant]
  4. ANTIDIABETICS [Concomitant]

REACTIONS (1)
  - DEATH [None]
